FAERS Safety Report 18997558 (Version 4)
Quarter: 2021Q3

REPORT INFORMATION
  Report Type: Spontaneous
  Country: US (occurrence: US)
  Receive Date: 20210311
  Receipt Date: 20210706
  Transmission Date: 20211014
  Serious: Yes (Death, Hospitalization)
  Sender: FDA-Public Use
  Company Number: US-KARYOPHARM-2021KPT000294

PATIENT

DRUGS (9)
  1. XPOVIO [Suspect]
     Active Substance: SELINEXOR
     Indication: DIFFUSE LARGE B-CELL LYMPHOMA
     Dosage: 60 MG, 2X/WEEK
     Route: 048
     Dates: start: 20210208
  2. GEMZAR [Concomitant]
     Active Substance: GEMCITABINE HYDROCHLORIDE
  3. OXALIPLATIN. [Concomitant]
     Active Substance: OXALIPLATIN
  4. BENDAMUSTINE [Concomitant]
     Active Substance: BENDAMUSTINE
  5. VINCRISTINE [VINCRISTINE SULFATE] [Concomitant]
     Active Substance: VINCRISTINE SULFATE
  6. DOXORUBICIN [Concomitant]
     Active Substance: DOXORUBICIN
  7. XPOVIO [Suspect]
     Active Substance: SELINEXOR
     Dosage: 60 MG, 2X/WEEK
     Route: 048
  8. ELIQUIS [Concomitant]
     Active Substance: APIXABAN
     Indication: PRODUCT USED FOR UNKNOWN INDICATION
  9. RITUXAN [Concomitant]
     Active Substance: RITUXIMAB

REACTIONS (8)
  - Death [Fatal]
  - Fall [Unknown]
  - Pneumonia [Unknown]
  - Eye swelling [Unknown]
  - Oral mucosal blistering [Unknown]
  - Haemorrhoids [Unknown]
  - Product dose omission in error [Unknown]
  - Diarrhoea [Unknown]

NARRATIVE: CASE EVENT DATE: 2021
